FAERS Safety Report 7384751-5 (Version None)
Quarter: 2011Q1

REPORT INFORMATION
  Report Type: 
  Country: None (occurrence: None)
  Receive Date: 20110330
  Receipt Date: 20110324
  Transmission Date: 20110831
  Serious: Yes (Life-Threatening)
  Sender: FDA-Public Use
  Company Number: PHHY2011CA24803

PATIENT
  Sex: Female

DRUGS (1)
  1. ACLASTA [Suspect]
     Indication: OSTEOPOROSIS
     Dosage: UNK
     Route: 042
     Dates: start: 20100217

REACTIONS (5)
  - FEELING ABNORMAL [None]
  - NAUSEA [None]
  - DRUG INEFFECTIVE [None]
  - HEADACHE [None]
  - DIARRHOEA [None]
